FAERS Safety Report 7520359-6 (Version None)
Quarter: 2011Q2

REPORT INFORMATION
  Report Type: 
  Country: None (occurrence: None)
  Receive Date: 20110602
  Receipt Date: 20110527
  Transmission Date: 20111010
  Serious: Yes (Congenital Anomaly, Other)
  Sender: FDA-Public Use
  Company Number: PHHY2011US47295

PATIENT
  Sex: Male

DRUGS (3)
  1. LAMOTRIGINE [Suspect]
     Dosage: 200 MG, UNK
     Route: 064
  2. ZOLPIDEM [Suspect]
     Dosage: UNK
     Route: 064
  3. LAMOTRIGINE [Suspect]
     Dosage: 250 MG, UNK
     Route: 064

REACTIONS (3)
  - PILONIDAL CYST CONGENITAL [None]
  - GASTROOESOPHAGEAL REFLUX DISEASE [None]
  - DRUG EXPOSURE DURING PREGNANCY [None]
